FAERS Safety Report 4402257-X (Version None)
Quarter: 2004Q3

REPORT INFORMATION
  Report Type: 
  Country: None (occurrence: None)
  Receive Date: 20040715
  Receipt Date: 20040701
  Transmission Date: 20050211
  Serious: Yes (Hospitalization)
  Sender: FDA-Public Use
  Company Number: WAES 0407USA00611

PATIENT
  Age: 65 Year
  Sex: Female

DRUGS (6)
  1. ZOCOR [Suspect]
     Indication: HYPERLIPIDAEMIA
     Dosage: 5 MG/DAILY PO
     Route: 048
     Dates: start: 19920724, end: 19960316
  2. ALESION [Concomitant]
  3. CIBENOL [Concomitant]
  4. KALGUT [Concomitant]
  5. LASIX [Concomitant]
  6. PROHEPARUM [Concomitant]

REACTIONS (1)
  - TOXIC SKIN ERUPTION [None]
